FAERS Safety Report 11782111 (Version 1)
Quarter: 2015Q4

REPORT INFORMATION
  Report Type: Report from Study
  Country: CA (occurrence: CA)
  Receive Date: 20151127
  Receipt Date: 20151127
  Transmission Date: 20160305
  Serious: Yes (Hospitalization)
  Sender: FDA-Public Use
  Company Number: CA-ROCHE-ITM201408IM006804

PATIENT
  Age: 66 Year
  Sex: Female
  Weight: 95 kg

DRUGS (19)
  1. VALSARTAN. [Concomitant]
     Active Substance: VALSARTAN
  2. TOVIAZ [Concomitant]
     Active Substance: FESOTERODINE FUMARATE
  3. PREDNISONE. [Concomitant]
     Active Substance: PREDNISONE
  4. CELEBREX [Concomitant]
     Active Substance: CELECOXIB
     Dosage: AS NEEDED.
     Route: 065
  5. NORVASC [Concomitant]
     Active Substance: AMLODIPINE BESYLATE
  6. ESBRIET [Suspect]
     Active Substance: PIRFENIDONE
     Route: 048
     Dates: end: 201410
  7. ESBRIET [Suspect]
     Active Substance: PIRFENIDONE
     Route: 048
     Dates: start: 20140622
  8. ESBRIET [Suspect]
     Active Substance: PIRFENIDONE
     Route: 048
  9. NOLVADEX-D [Concomitant]
  10. DEXILANT [Concomitant]
     Active Substance: DEXLANSOPRAZOLE
  11. ESBRIET [Suspect]
     Active Substance: PIRFENIDONE
     Route: 048
     Dates: start: 20151103
  12. HYDROCHLOROTHIAZIDE. [Concomitant]
     Active Substance: HYDROCHLOROTHIAZIDE
  13. ALENDRONATE [Concomitant]
     Active Substance: ALENDRONATE SODIUM
  14. VENTOLIN [Concomitant]
     Active Substance: ALBUTEROL SULFATE
  15. ESBRIET [Suspect]
     Active Substance: PIRFENIDONE
     Indication: IDIOPATHIC PULMONARY FIBROSIS
     Route: 048
     Dates: start: 20140321
  16. OSCAL [Concomitant]
     Active Substance: CALCIUM CARBONATE
  17. AZATHIOPRINE. [Concomitant]
     Active Substance: AZATHIOPRINE
  18. OXYGEN. [Concomitant]
     Active Substance: OXYGEN
     Dosage: 100%
     Route: 065
  19. ESBRIET [Suspect]
     Active Substance: PIRFENIDONE
     Dosage: 534 MG, 267 MG, 534 MG
     Route: 048
     Dates: start: 20140828

REACTIONS (15)
  - Back pain [Unknown]
  - Decreased appetite [Recovered/Resolved with Sequelae]
  - Dizziness [Unknown]
  - Nausea [Recovered/Resolved with Sequelae]
  - Chills [Unknown]
  - Hyperhidrosis [Unknown]
  - Lung disorder [Recovered/Resolved with Sequelae]
  - Tremor [Unknown]
  - Dyspnoea [Unknown]
  - Pyrexia [Unknown]
  - Dizziness [Recovered/Resolved with Sequelae]
  - Weight decreased [Recovered/Resolved with Sequelae]
  - Arthritis [Unknown]
  - Headache [Unknown]
  - Erythema [Unknown]

NARRATIVE: CASE EVENT DATE: 20140828
